FAERS Safety Report 5595196-2 (Version None)
Quarter: 2008Q1

REPORT INFORMATION
  Report Type: 
  Country: None (occurrence: None)
  Receive Date: 20080117
  Receipt Date: 20080109
  Transmission Date: 20080703
  Serious: Yes (Death, Other)
  Sender: FDA-Public Use
  Company Number: US-PFIZER INC-2008002974

PATIENT
  Age: 49 Year
  Sex: Male

DRUGS (3)
  1. ALPRAZOLAM [Suspect]
  2. OXYCODONE [Suspect]
  3. COCAINE [Suspect]

REACTIONS (1)
  - DEATH [None]
